FAERS Safety Report 17154652 (Version 1)
Quarter: 2019Q4

REPORT INFORMATION
  Report Type: Spontaneous
  Country: JP (occurrence: JP)
  Receive Date: 20191214
  Receipt Date: 20191214
  Transmission Date: 20200122
  Serious: Yes (Other)
  Sender: FDA-Public Use
  Company Number: JP-AMGEN-JPNSP2019192168

PATIENT
  Age: 10 Decade
  Sex: Female

DRUGS (4)
  1. LIXIANA [Concomitant]
     Active Substance: EDOXABAN TOSYLATE
     Indication: ARRHYTHMIA
     Dosage: 30 MILLIGRAM, QD
     Route: 048
  2. EDIROL [Concomitant]
     Active Substance: ELDECALCITOL
     Indication: HYPOCALCAEMIA
     Dosage: 0.75 MICROGRAM, QD
     Route: 048
     Dates: start: 20140912, end: 20190315
  3. PRALIA [Suspect]
     Active Substance: DENOSUMAB
     Indication: OSTEOPOROSIS
     Dosage: 60 MILLIGRAM, Q6MO
     Route: 058
     Dates: start: 20140314, end: 20190315
  4. PRALIA [Suspect]
     Active Substance: DENOSUMAB
     Dosage: 60 MILLIGRAM, Q6MO
     Route: 058
     Dates: start: 201911

REACTIONS (1)
  - Spinal compression fracture [Not Recovered/Not Resolved]

NARRATIVE: CASE EVENT DATE: 20191101
